FAERS Safety Report 7988037-7 (Version None)
Quarter: 2011Q4

REPORT INFORMATION
  Report Type: 
  Country: None (occurrence: None)
  Receive Date: 20111216
  Receipt Date: 20101201
  Transmission Date: 20120403
  Serious: No
  Sender: FDA-Public Use
  Company Number: US-BRISTOL-MYERS SQUIBB COMPANY-15418254

PATIENT
  Age: 10 Year
  Sex: Male

DRUGS (3)
  1. ABILIFY [Suspect]
     Dosage: DOSE REDUCED TO 7.5MG.
  2. DEPAKOTE [Concomitant]
  3. LITHIUM CARBONATE [Concomitant]

REACTIONS (1)
  - DYSTONIA [None]
